FAERS Safety Report 25488145 (Version 2)
Quarter: 2025Q3

REPORT INFORMATION
  Report Type: Spontaneous
  Country: US (occurrence: US)
  Receive Date: 20250627
  Receipt Date: 20250708
  Transmission Date: 20251020
  Serious: No
  Sender: ROCHE
  Company Number: US-ROCHE-10000320060

PATIENT
  Sex: Female

DRUGS (3)
  1. XOLAIR [Suspect]
     Active Substance: OMALIZUMAB
     Indication: Chronic spontaneous urticaria
     Dosage: 1 INJECTION
     Route: 065
     Dates: start: 20250212, end: 20250616
  2. PREDNISONE [Suspect]
     Active Substance: PREDNISONE
     Indication: Chronic spontaneous urticaria
     Dosage: 1 TABLET
     Route: 065
     Dates: start: 20230914, end: 20250616
  3. CYCLOSPORINE [Suspect]
     Active Substance: CYCLOSPORINE
     Indication: Chronic spontaneous urticaria
     Dosage: 1 CAPSULE
     Route: 065
     Dates: start: 20240623, end: 20250616

REACTIONS (3)
  - Treatment failure [Unknown]
  - Off label use [Unknown]
  - No adverse event [Unknown]
